FAERS Safety Report 12865720 (Version 2)
Quarter: 2016Q4

REPORT INFORMATION
  Report Type: Spontaneous
  Country: US (occurrence: US)
  Receive Date: 20161020
  Receipt Date: 20161227
  Transmission Date: 20170207
  Serious: Yes (Hospitalization)
  Sender: FDA-Public Use
  Company Number: US-PFIZER INC-2016477971

PATIENT
  Age: 90 Year
  Sex: Female
  Weight: 53.52 kg

DRUGS (3)
  1. IBRANCE [Suspect]
     Active Substance: PALBOCICLIB
     Indication: NEOPLASM MALIGNANT
     Dosage: 125 MG, 1X/DAY, FOR 21 DAYS AND THEN OFF FOR 7 DAYS
     Route: 048
  2. FEMARA [Concomitant]
     Active Substance: LETROZOLE
     Indication: NEOPLASM MALIGNANT
     Dosage: UNK
  3. IBRANCE [Suspect]
     Active Substance: PALBOCICLIB
     Indication: BREAST CANCER

REACTIONS (1)
  - Urinary tract infection [Not Recovered/Not Resolved]

NARRATIVE: CASE EVENT DATE: 20160929
